FAERS Safety Report 4665459-3 (Version None)
Quarter: 2005Q2

REPORT INFORMATION
  Report Type: 
  Country: None (occurrence: None)
  Receive Date: 20050517
  Receipt Date: 20050504
  Transmission Date: 20051028
  Serious: Yes (Other)
  Sender: FDA-Public Use
  Company Number: 2005070825

PATIENT
  Age: 54 Year
  Sex: Male
  Weight: 83.9154 kg

DRUGS (3)
  1. SUDAFED 12 HOUR [Suspect]
     Indication: DYSPEPSIA
     Dosage: 1 CAP Q12H, PRN, ORAL
     Route: 048
  2. SUDAFED 12 HOUR [Suspect]
     Indication: NASOPHARYNGITIS
     Dosage: 1 CAP Q12H, PRN, ORAL
     Route: 048
  3. ROLAIDS [Suspect]
     Indication: DYSPEPSIA
     Dosage: 2 TABS PRN, ORAL
     Route: 048

REACTIONS (2)
  - MALIGNANT MELANOMA [None]
  - OPERATIVE HAEMORRHAGE [None]
